FAERS Safety Report 7982700-X (Version None)
Quarter: 2011Q4

REPORT INFORMATION
  Report Type: 
  Country: None (occurrence: None)
  Receive Date: 20111215
  Receipt Date: 20111212
  Transmission Date: 20120403
  Serious: Yes (Other)
  Sender: FDA-Public Use
  Company Number: GB-SANOFI-AVENTIS-2011SA069994

PATIENT
  Age: 46 Year
  Sex: Female

DRUGS (1)
  1. ELOXATIN [Suspect]
     Indication: OCCUPATIONAL EXPOSURE TO DRUG
     Route: 065
     Dates: start: 20111014, end: 20111014

REACTIONS (3)
  - THERMAL BURN [None]
  - ACCIDENTAL EXPOSURE [None]
  - APPLICATION SITE VESICLES [None]
